FAERS Safety Report 6181112-1 (Version None)
Quarter: 2009Q2

REPORT INFORMATION
  Report Type: 
  Country: None (occurrence: None)
  Receive Date: 20090501
  Receipt Date: 20090423
  Transmission Date: 20091009
  Serious: Yes (Death)
  Sender: FDA-Public Use
  Company Number: 255040

PATIENT
  Age: 67 Year

DRUGS (15)
  1. ETOPOSIDE [Suspect]
     Indication: NON-HODGKIN'S LYMPHOMA
     Dosage: UNKNOWN, PER CYCLE, UNKNOWN
  2. VINCRISTINE [Suspect]
     Indication: NON-HODGKIN'S LYMPHOMA
     Dosage: UNKNOWN, PER CYCLE, UNKNOWN
  3. DOXORUBICIN HCL [Suspect]
     Indication: NON-HODGKIN'S LYMPHOMA
     Dosage: UNKNOWN, PER CYCLE, UNKNOWN
  4. (THERAPEUTIC RADIOPHARMACEUTICALS) [Suspect]
     Indication: NON-HODGKIN'S LYMPHOMA
  5. (RITUXIMAB) [Suspect]
     Indication: NON-HODGKIN'S LYMPHOMA
     Dosage: UNKNOWN, PER CYCLE, UNKNOWN
  6. CYCLOPHOSPHAMIDE [Suspect]
     Indication: NON-HODGKIN'S LYMPHOMA
     Dosage: UNKNOWN, PER CYCLE, UNKNOWN
  7. PREDNISOLONE [Suspect]
     Indication: NON-HODGKIN'S LYMPHOMA
     Dosage: UNKNOWN, PER CYCLE, UNKNOWN
  8. CYTARABINE [Suspect]
     Indication: NON-HODGKIN'S LYMPHOMA
     Dosage: UNKNOWN, PER CYCLE, UNKNOWN
  9. DEXAMETHASONE 4MG TAB [Suspect]
     Indication: NON-HODGKIN'S LYMPHOMA
     Dosage: UNKNOWN, PER CYCLE, UNKNOWN
  10. METHOTREXATE [Suspect]
     Indication: NON-HODGKIN'S LYMPHOMA
     Dosage: UNKNOWN, PER CYCLE, UNKNOWN
  11. (MELPHALAN) [Suspect]
     Indication: NON-HODGKIN'S LYMPHOMA
     Dosage: UNKNOWN, PER CYCLE, UNKNOWN
  12. CISPLATIN [Suspect]
     Indication: NON-HODGKIN'S LYMPHOMA
     Dosage: UNKNOWN, PER CYCLE, UNKNOWN
  13. CARMUSTINE [Suspect]
     Indication: NON-HODGKIN'S LYMPHOMA
     Dosage: UNKNOWN, PER CYCLE, UNKNOWN
  14. PREDNISONE [Suspect]
     Indication: NON-HODGKIN'S LYMPHOMA
     Dosage: 100 MG, EVERY OTHER DAY, UNKNOWN
  15. METRONIDAZOLE [Concomitant]

REACTIONS (14)
  - ANAEMIA [None]
  - BLOOD IRON DECREASED [None]
  - CLOSTRIDIAL INFECTION [None]
  - DIARRHOEA [None]
  - FLATULENCE [None]
  - GAS GANGRENE [None]
  - LEG AMPUTATION [None]
  - LEUKOPENIA [None]
  - LYMPHOMA [None]
  - MALIGNANT NEOPLASM PROGRESSION [None]
  - MONOPLEGIA [None]
  - PROCEDURAL COMPLICATION [None]
  - SEPTIC SHOCK [None]
  - STAPHYLOCOCCAL INFECTION [None]
